FAERS Safety Report 11942174 (Version 1)
Quarter: 2016Q1

REPORT INFORMATION
  Report Type: Spontaneous
  Country: US (occurrence: US)
  Receive Date: 20160125
  Receipt Date: 20160125
  Transmission Date: 20160526
  Serious: No
  Sender: FDA-Public Use
  Company Number: US-AMGEN-USASP2016006996

PATIENT
  Age: 52 Year
  Sex: Female
  Weight: 76.19 kg

DRUGS (1)
  1. ENBREL [Suspect]
     Active Substance: ETANERCEPT
     Indication: PSORIASIS
     Dosage: 50 MG, QWK
     Route: 058
     Dates: start: 201507

REACTIONS (4)
  - Injection site bruising [Unknown]
  - Somnolence [Unknown]
  - Weight increased [Unknown]
  - Insomnia [Unknown]

NARRATIVE: CASE EVENT DATE: 201507
